FAERS Safety Report 6736102-4 (Version None)
Quarter: 2010Q2

REPORT INFORMATION
  Report Type: 
  Country: None (occurrence: None)
  Receive Date: 20100521
  Receipt Date: 20100517
  Transmission Date: 20101027
  Serious: Yes (Hospitalization)
  Sender: FDA-Public Use
  Company Number: US-PERRIGO-10US009734

PATIENT
  Sex: Male
  Weight: 88.889 kg

DRUGS (19)
  1. POLYETHYLENE GLYCOL 3350 17G 306 [Suspect]
     Indication: CONSTIPATION
     Dosage: 17 G, QD
     Route: 048
     Dates: start: 20091001
  2. POLYETHYLENE GLYCOL [Concomitant]
     Indication: CONSTIPATION
     Dosage: 17 G,QD
     Route: 048
     Dates: start: 20090501, end: 20091001
  3. FUROSEMIDE [Concomitant]
     Indication: BLOOD PRESSURE
     Dosage: 40 MG, QD
     Route: 048
  4. LEVOTHYROXINE SODIUM [Concomitant]
     Indication: HYPOTHYROIDISM
     Dosage: 0.025 MG, QD
     Route: 048
  5. METOPROLOL TARTRATE [Concomitant]
     Indication: CARDIAC DISORDER
     Dosage: 25 MG, BID
     Route: 048
  6. LORAZEPAM [Concomitant]
     Indication: SLEEP DISORDER
     Dosage: .5 MG, QD AT BEDTIME
     Route: 048
  7. LISINOPRIL [Concomitant]
     Indication: BLOOD PRESSURE
     Dosage: 10 MG, QD
     Route: 048
  8. LIDODERM [Concomitant]
     Indication: PAIN
     Dosage: 350 MG, APPLIED DAILY AT 0900 AND REMOVED AT 2100
     Route: 061
  9. SIMVASTATIN [Concomitant]
     Indication: BLOOD CHOLESTEROL INCREASED
     Dosage: 20 MG, QD
     Route: 048
  10. SERTRALINE HYDROCHLORIDE [Concomitant]
     Indication: DEPRESSION
     Dosage: 50 MG, QD
     Route: 048
  11. OMEPRAZOLE [Concomitant]
     Indication: GASTROOESOPHAGEAL REFLUX DISEASE
     Dosage: 40 MG, QD
     Route: 048
  12. MORPHINE SULFATE [Concomitant]
     Indication: PAIN
     Dosage: 15 MG, BID
     Route: 048
  13. HYDROCODONE [Concomitant]
     Indication: PAIN
     Dosage: 5 MG, EVERY FOUR HOURS DAILY
     Route: 048
  14. FINASTERIDE [Concomitant]
     Indication: PROSTATE EXAMINATION ABNORMAL
     Dosage: 5 MG, QD
     Route: 048
  15. WARFARIN SODIUM [Concomitant]
     Indication: PROPHYLAXIS
     Dosage: 3 MG, QD
     Route: 048
  16. MELOXICAM [Concomitant]
     Indication: ARTHRITIS
     Dosage: 1 TABLET, DAILY AT NOON
     Route: 048
  17. FLUTICASONE PROPIONATE [Concomitant]
     Indication: NASAL CONGESTION
     Dosage: UNK
     Route: 045
  18. TERAZOSIN HCL [Concomitant]
     Indication: ROUTINE HEALTH MAINTENANCE
     Dosage: 10 MG, QD
     Route: 065
  19. TERAZOSIN HCL [Concomitant]
     Indication: BLOOD PRESSURE

REACTIONS (6)
  - CONDITION AGGRAVATED [None]
  - DIZZINESS [None]
  - DRUG EFFECT DECREASED [None]
  - DYSPNOEA [None]
  - INCORRECT DRUG ADMINISTRATION DURATION [None]
  - WEIGHT INCREASED [None]
